FAERS Safety Report 18546237 (Version 1)
Quarter: 2020Q4

REPORT INFORMATION
  Report Type: Spontaneous
  Country: US (occurrence: US)
  Receive Date: 20201125
  Receipt Date: 20201125
  Transmission Date: 20210114
  Serious: Yes (Other)
  Sender: FDA-Public Use
  Company Number: US-BAYER-2020-254346

PATIENT
  Age: 71 Year
  Sex: Male

DRUGS (2)
  1. ACETYLSALICYLIC ACID [Suspect]
     Active Substance: ASPIRIN
  2. TICAGRELOR. [Interacting]
     Active Substance: TICAGRELOR

REACTIONS (4)
  - Haemoglobin decreased [None]
  - Lower gastrointestinal haemorrhage [None]
  - Rectal ulcer [None]
  - Labelled drug-drug interaction issue [None]
